FAERS Safety Report 5516665-7 (Version None)
Quarter: 2007Q4

REPORT INFORMATION
  Report Type: 
  Country: None (occurrence: None)
  Receive Date: 20071114
  Receipt Date: 20070411
  Transmission Date: 20080405
  Serious: No
  Sender: FDA-Public Use
  Company Number: A0646556A

PATIENT
  Age: 62 Year
  Sex: Female

DRUGS (2)
  1. COMMIT [Suspect]
  2. NICODERM CQ [Suspect]

REACTIONS (12)
  - ANOREXIA [None]
  - DRY MOUTH [None]
  - GINGIVAL DISORDER [None]
  - INSOMNIA [None]
  - LIP BLISTER [None]
  - MALAISE [None]
  - NERVOUSNESS [None]
  - ORAL MUCOSAL BLISTERING [None]
  - PAIN IN JAW [None]
  - SCAB [None]
  - STOMATITIS [None]
  - TONGUE BLISTERING [None]
